FAERS Safety Report 12335495 (Version 1)
Quarter: 2016Q2

REPORT INFORMATION
  Report Type: Spontaneous
  Country: US (occurrence: US)
  Receive Date: 20160504
  Receipt Date: 20160504
  Transmission Date: 20160815
  Serious: No
  Sender: FDA-Public Use
  Company Number: US-JNJFOC-20160411954

PATIENT
  Age: 60 Year
  Sex: Male

DRUGS (12)
  1. MATURE MULTIVITAMINS [Concomitant]
  2. PROLIA [Concomitant]
     Active Substance: DENOSUMAB
  3. NASONEX [Concomitant]
     Active Substance: MOMETASONE FUROATE
  4. FLAXSEED [Concomitant]
     Active Substance: FLAX SEED
  5. LEUPRORELIN ACETATE [Concomitant]
     Active Substance: LEUPROLIDE ACETATE
  6. POTASSIUM [Concomitant]
     Active Substance: POTASSIUM
  7. MAGNESIUM OXIDE. [Concomitant]
     Active Substance: MAGNESIUM OXIDE
  8. ZYTIGA [Suspect]
     Active Substance: ABIRATERONE ACETATE
     Indication: PROSTATE CANCER
     Route: 048
  9. CRESTOR [Concomitant]
     Active Substance: ROSUVASTATIN CALCIUM
  10. CALTRATE 600+D [Concomitant]
  11. GARLIC. [Concomitant]
     Active Substance: GARLIC
  12. VITAMIN C [Concomitant]
     Active Substance: ASCORBIC ACID

REACTIONS (1)
  - Headache [Unknown]
